FAERS Safety Report 19360191 (Version 1)
Quarter: 2021Q2

REPORT INFORMATION
  Report Type: Spontaneous
  Country: US (occurrence: US)
  Receive Date: 20210601
  Receipt Date: 20210601
  Transmission Date: 20210717
  Serious: No
  Sender: FDA-Public Use
  Company Number: US-PFIZER INC-2021252588

PATIENT
  Age: 22 Year
  Sex: Female

DRUGS (1)
  1. SOMAVERT [Suspect]
     Active Substance: PEGVISOMANT
     Indication: ACROMEGALY
     Dosage: 15 MG, DAILY (7X A WEEK)
     Route: 058
     Dates: start: 20200210

REACTIONS (2)
  - Rash [Unknown]
  - Drug hypersensitivity [Unknown]
